FAERS Safety Report 16694487 (Version 2)
Quarter: 2019Q3

REPORT INFORMATION
  Report Type: Spontaneous
  Country: US (occurrence: US)
  Receive Date: 20190812
  Receipt Date: 20190902
  Transmission Date: 20191004
  Serious: Yes (Other)
  Sender: FDA-Public Use
  Company Number: PHEH2019US032875

PATIENT
  Age: 78 Year
  Sex: Female
  Weight: 76.2 kg

DRUGS (1)
  1. ZOMETA [Suspect]
     Active Substance: ZOLEDRONIC ACID
     Indication: BREAST CANCER STAGE I
     Dosage: 4 MG, OTHER (EVERY SIX MONTHS)
     Route: 042
     Dates: start: 20190730, end: 20190730

REACTIONS (10)
  - Pyrexia [Recovered/Resolved with Sequelae]
  - Eye swelling [Recovered/Resolved with Sequelae]
  - Pain [Recovered/Resolved with Sequelae]
  - Nausea [Recovering/Resolving]
  - Urinary incontinence [Recovered/Resolved]
  - Visual impairment [Recovered/Resolved with Sequelae]
  - Vomiting [Recovering/Resolving]
  - Hypertension [Recovered/Resolved]
  - Bone pain [Recovering/Resolving]
  - Chills [Recovered/Resolved with Sequelae]

NARRATIVE: CASE EVENT DATE: 20190730
